FAERS Safety Report 6430178-X (Version None)
Quarter: 2009Q4

REPORT INFORMATION
  Report Type: 
  Country: None (occurrence: None)
  Receive Date: 20091106
  Receipt Date: 20091102
  Transmission Date: 20100525
  Serious: Yes (Death, Hospitalization)
  Sender: FDA-Public Use
  Company Number: PHHY2009SI47694

PATIENT
  Sex: Female

DRUGS (2)
  1. EXJADE [Suspect]
     Dosage: 500 MG, QOD
  2. EXJADE [Suspect]
     Dosage: 500 MG, DAILY
     Dates: start: 20091030

REACTIONS (1)
  - DEATH [None]
